FAERS Safety Report 21122638 (Version 4)
Quarter: 2022Q3

REPORT INFORMATION
  Report Type: Spontaneous
  Country: JP (occurrence: JP)
  Receive Date: 20220723
  Receipt Date: 20220901
  Transmission Date: 20221027
  Serious: Yes (Life-Threatening, Hospitalization, Disabling, Other)
  Sender: FDA-Public Use
  Company Number: JP-UNITED THERAPEUTICS-UNT-2021-022107

PATIENT
  Age: 8 Year
  Sex: Female
  Weight: 24 kg

DRUGS (25)
  1. UNITUXIN [Suspect]
     Active Substance: DINUTUXIMAB
     Indication: Neuroblastoma recurrent
     Dosage: 17.5 MG/M2, CYCLICAL
     Route: 041
     Dates: start: 20211026, end: 20211027
  2. UNITUXIN [Suspect]
     Active Substance: DINUTUXIMAB
     Dosage: 17.5 MG/M2, CYCLICAL
     Route: 041
     Dates: start: 20211029, end: 20211030
  3. UNITUXIN [Suspect]
     Active Substance: DINUTUXIMAB
     Dosage: 17.5 MG/M2, CYCLICAL (CYCLE 2)
     Route: 041
     Dates: start: 20211129, end: 20211202
  4. UNITUXIN [Suspect]
     Active Substance: DINUTUXIMAB
     Dosage: 17.5 MG/M2, CYCLICAL (CYCLE 3)
     Route: 041
     Dates: start: 20211223, end: 20211226
  5. UNITUXIN [Suspect]
     Active Substance: DINUTUXIMAB
     Dosage: 17.5 MG/M2, CYCLICAL (CYCLE 4)
     Route: 041
     Dates: start: 20220124, end: 20220127
  6. UNITUXIN [Suspect]
     Active Substance: DINUTUXIMAB
     Dosage: 17.5 MG/M2, CYCLICAL (CYCLE 5)
     Route: 041
     Dates: start: 20220217, end: 20220220
  7. UNITUXIN [Suspect]
     Active Substance: DINUTUXIMAB
     Dosage: 17.5 MG/M2, CYCLICAL (CYCLE 6)
     Route: 041
     Dates: start: 20220321, end: 20220324
  8. MORPHINE [Suspect]
     Active Substance: MORPHINE
     Indication: Prophylaxis
     Dosage: UNK
     Route: 065
     Dates: start: 20211026, end: 20211102
  9. FILGRASTIM [Suspect]
     Active Substance: FILGRASTIM
     Indication: Neuroblastoma recurrent
     Dosage: 5 MG/KG
     Route: 065
     Dates: start: 20211023, end: 20211027
  10. FILGRASTIM [Suspect]
     Active Substance: FILGRASTIM
     Dosage: 5 MG/KG
     Route: 065
     Dates: start: 20211029, end: 20211106
  11. FILGRASTIM [Suspect]
     Active Substance: FILGRASTIM
     Dosage: 5 MG/KG, QD
     Route: 065
     Dates: start: 20211220, end: 20220102
  12. FILGRASTIM [Suspect]
     Active Substance: FILGRASTIM
     Dosage: UNK
     Route: 065
     Dates: start: 20220214
  13. TECELEUKIN [Suspect]
     Active Substance: TECELEUKIN
     Indication: Neuroblastoma
     Dosage: 750000 IU/M2
     Route: 041
     Dates: start: 20211122, end: 20211125
  14. TECELEUKIN [Suspect]
     Active Substance: TECELEUKIN
     Dosage: 1000000 IU/M2
     Route: 041
     Dates: start: 20211129, end: 20211202
  15. TECELEUKIN [Suspect]
     Active Substance: TECELEUKIN
     Dosage: UNK
     Route: 041
     Dates: start: 20220117
  16. HYDROXYZINE [Concomitant]
     Active Substance: HYDROXYZINE HYDROCHLORIDE
     Indication: Prophylaxis
     Dosage: UNK
     Route: 065
     Dates: start: 20211026, end: 20211030
  17. HYDROXYZINE [Concomitant]
     Active Substance: HYDROXYZINE HYDROCHLORIDE
     Dosage: UNK
     Route: 065
     Dates: start: 20211129, end: 20211203
  18. HYDROXYZINE [Concomitant]
     Active Substance: HYDROXYZINE HYDROCHLORIDE
     Dosage: UNK
     Route: 065
     Dates: start: 20211223, end: 20211226
  19. ACETAMINOPHEN [Concomitant]
     Active Substance: ACETAMINOPHEN
     Indication: Prophylaxis
     Dosage: UNK
     Route: 065
     Dates: start: 20211026, end: 20211030
  20. ACETAMINOPHEN [Concomitant]
     Active Substance: ACETAMINOPHEN
     Dosage: UNK
     Route: 065
     Dates: start: 20211122, end: 20211203
  21. ACETAMINOPHEN [Concomitant]
     Active Substance: ACETAMINOPHEN
     Dosage: UNK
     Route: 065
     Dates: start: 20211223, end: 20211226
  22. METOCLOPRAMIDE [Concomitant]
     Active Substance: METOCLOPRAMIDE
     Indication: Prophylaxis
     Dosage: UNK
     Route: 065
     Dates: start: 20211026, end: 20211026
  23. FUROSEMIDE [Concomitant]
     Active Substance: FUROSEMIDE
     Indication: Prophylaxis
     Dosage: UNK
     Route: 065
     Dates: start: 20211027, end: 20211031
  24. FUROSEMIDE [Concomitant]
     Active Substance: FUROSEMIDE
     Dosage: UNK
     Route: 065
     Dates: start: 20211130, end: 20211202
  25. FENTANYL [Concomitant]
     Active Substance: FENTANYL
     Indication: Prophylaxis
     Dosage: UNK
     Route: 065
     Dates: start: 20211129, end: 20211203

REACTIONS (35)
  - Acute graft versus host disease [Not Recovered/Not Resolved]
  - Human herpesvirus 6 encephalitis [Recovered/Resolved with Sequelae]
  - Device related infection [Recovered/Resolved]
  - Septic shock [Recovered/Resolved]
  - Pneumonia [Not Recovered/Not Resolved]
  - Postrenal failure [Recovered/Resolved]
  - C-reactive protein increased [Recovering/Resolving]
  - Abdominal pain [Recovering/Resolving]
  - Pyrexia [Recovered/Resolved]
  - Urinary retention [Recovering/Resolving]
  - Pain in extremity [Recovering/Resolving]
  - Aspartate aminotransferase increased [Recovered/Resolved]
  - Alanine aminotransferase increased [Recovered/Resolved]
  - Blood lactate dehydrogenase increased [Recovering/Resolving]
  - Blood creatine phosphokinase increased [Recovering/Resolving]
  - Hypoalbuminaemia [Recovering/Resolving]
  - Hypoalbuminaemia [Recovering/Resolving]
  - Fibrin D dimer increased [Recovering/Resolving]
  - Conjunctival hyperaemia [Recovered/Resolved]
  - Pyrexia [Recovered/Resolved]
  - Eyelid oedema [Recovered/Resolved]
  - C-reactive protein increased [Recovered/Resolved]
  - Pyrexia [Recovered/Resolved]
  - Back pain [Recovered/Resolved]
  - Abdominal pain [Recovered/Resolved]
  - Pain in extremity [Recovered/Resolved]
  - Eyelid oedema [Recovered/Resolved]
  - Pyrexia [Recovered/Resolved]
  - Pain in extremity [Recovered/Resolved]
  - Pyrexia [Recovered/Resolved]
  - Pain in extremity [Recovered/Resolved]
  - Urine output decreased [Unknown]
  - Dysuria [Unknown]
  - Generalised oedema [Unknown]
  - Puncture site abscess [Recovered/Resolved]

NARRATIVE: CASE EVENT DATE: 20211026
